FAERS Safety Report 4348366-5 (Version None)
Quarter: 2004Q2

REPORT INFORMATION
  Report Type: 
  Country: None (occurrence: None)
  Receive Date: 20040427
  Receipt Date: 20040302
  Transmission Date: 20050107
  Serious: Yes (Other)
  Sender: FDA-Public Use
  Company Number: PHBS2004BR02935

PATIENT
  Age: 7 Year
  Sex: Male
  Weight: 23 kg

DRUGS (3)
  1. RITALINA [Suspect]
     Indication: ATTENTION DEFICIT/HYPERACTIVITY DISORDER
     Dosage: 2.5 TABLETS/DAY
     Route: 048
     Dates: start: 20030101, end: 20040301
  2. POLIVITAMINE [Concomitant]
  3. REVITAM JR [Concomitant]

REACTIONS (13)
  - AGITATION [None]
  - ASTHMA [None]
  - DEVELOPMENTAL DELAY [None]
  - EOSINOPHIL COUNT INCREASED [None]
  - GROWTH RETARDATION [None]
  - HEADACHE [None]
  - INSOMNIA [None]
  - PENIS DISORDER [None]
  - SKIN ODOUR ABNORMAL [None]
  - TESTICULAR RETRACTION [None]
  - TOOTH DISORDER [None]
  - VOMITING [None]
  - WEIGHT GAIN POOR [None]
